FAERS Safety Report 9448471 (Version 2)
Quarter: 2013Q3

REPORT INFORMATION
  Report Type: Spontaneous
  Country: FR (occurrence: FR)
  Receive Date: 20130808
  Receipt Date: 20130819
  Transmission Date: 20140515
  Serious: Yes (Life-Threatening, Hospitalization)
  Sender: FDA-Public Use
  Company Number: FR-BRACCO-001191

PATIENT
  Age: 45 Year
  Sex: Male

DRUGS (2)
  1. IOPAMIRON [Suspect]
     Indication: COMPUTERISED TOMOGRAM
     Route: 042
     Dates: start: 20130729, end: 20130729
  2. CORTICOSTEROIDS [Concomitant]
     Route: 040

REACTIONS (2)
  - Septic shock [Recovered/Resolved]
  - Device related sepsis [Recovered/Resolved]
